FAERS Safety Report 8110537-X (Version None)
Quarter: 2012Q1

REPORT INFORMATION
  Report Type: 
  Country: None (occurrence: None)
  Receive Date: 20120203
  Receipt Date: 20120126
  Transmission Date: 20120608
  Serious: Yes (Other)
  Sender: FDA-Public Use
  Company Number: CN-BRISTOL-MYERS SQUIBB COMPANY-16377681

PATIENT
  Age: 61 Year
  Sex: Male

DRUGS (5)
  1. DIPHENHYDRAMINE HCL [Concomitant]
     Indication: PREMEDICATION
  2. ERBITUX [Suspect]
     Indication: ADENOSQUAMOUS CELL LUNG CANCER
     Dosage: 400MG/M2 OVER 2HRS ON DAY1 250MG/M2 DAY8 ONWARDS OVER1HR PER WK IN 12 CYCLES
     Route: 042
     Dates: start: 20061001
  3. GEMCITABINE [Suspect]
     Indication: ADENOSQUAMOUS CELL LUNG CANCER
     Dosage: 4 CYCLICAL
     Route: 042
     Dates: start: 20061001
  4. CARBOPLATIN [Suspect]
     Indication: ADENOSQUAMOUS CELL LUNG CANCER
     Dosage: 4 CYCLICAL
     Route: 042
     Dates: start: 20061001
  5. CIMETIDINE [Concomitant]
     Indication: PREMEDICATION

REACTIONS (4)
  - LIVER INJURY [None]
  - DERMATITIS ACNEIFORM [None]
  - THROMBOCYTOPENIA [None]
  - NEUTROPENIA [None]
